FAERS Safety Report 5694470-9 (Version None)
Quarter: 2008Q2

REPORT INFORMATION
  Report Type: 
  Country: None (occurrence: None)
  Receive Date: 20080404
  Receipt Date: 20080325
  Transmission Date: 20081010
  Serious: Yes (Hospitalization)
  Sender: FDA-Public Use
  Company Number: PHEH2008US03079

PATIENT
  Age: 58 Year
  Sex: Male
  Weight: 107.94 kg

DRUGS (2)
  1. GLEEVEC [Suspect]
     Indication: PROSTATE CANCER METASTATIC
     Dosage: 400 MG, QD
     Route: 048
     Dates: start: 20080314
  2. DOCETAXEL [Suspect]
     Indication: PROSTATE CANCER METASTATIC
     Dosage: 60MG/M2 EVERY 21 DAYS
     Route: 048
     Dates: start: 20080317

REACTIONS (4)
  - DIARRHOEA [None]
  - FEBRILE NEUTROPENIA [None]
  - NAUSEA [None]
  - PYREXIA [None]
